FAERS Safety Report 19081454 (Version 1)
Quarter: 2021Q1

REPORT INFORMATION
  Report Type: Other
  Country: CA (occurrence: CA)
  Receive Date: 20210331
  Receipt Date: 20210331
  Transmission Date: 20210420
  Serious: Yes (Hospitalization)
  Sender: FDA-Public Use
  Company Number: CA-CELLTRION INC.-2021CA004174

PATIENT

DRUGS (24)
  1. AZATHIOPRINE. [Concomitant]
     Active Substance: AZATHIOPRINE
     Indication: PEMPHIGUS
  2. CALCIUM [Concomitant]
     Active Substance: CALCIUM
  3. METOPROLOL. [Concomitant]
     Active Substance: METOPROLOL
  4. OLMETEC [Concomitant]
     Active Substance: OLMESARTAN MEDOXOMIL
  5. SPIRONOLACTONE. [Concomitant]
     Active Substance: SPIRONOLACTONE
  6. AMLODIPINE [Concomitant]
     Active Substance: AMLODIPINE BESYLATE
  7. APIXABAN [Concomitant]
     Active Substance: APIXABAN
  8. BENADRYL [Concomitant]
     Active Substance: DIPHENHYDRAMINE HYDROCHLORIDE
     Indication: PREMEDICATION
     Dosage: 50 MG
     Route: 048
  9. DILTIAZEM. [Concomitant]
     Active Substance: DILTIAZEM
  10. RITUXIMAB (UNKNOWN) [Suspect]
     Active Substance: RITUXIMAB
     Indication: PEMPHIGOID
     Dosage: 1000 MG, 1 EVERY 15 DAYS
     Route: 042
  11. TYLENOL [Concomitant]
     Active Substance: ACETAMINOPHEN
     Indication: PREMEDICATION
     Dosage: 650 MG
     Route: 048
  12. CLOBETASOL [Concomitant]
     Active Substance: CLOBETASOL
  13. LATANOPROST. [Concomitant]
     Active Substance: LATANOPROST
     Route: 047
  14. LIPITOR [Concomitant]
     Active Substance: ATORVASTATIN CALCIUM
     Route: 065
  15. MYCOPHENOLATE SODIUM [Concomitant]
     Active Substance: MYCOPHENOLATE SODIUM
  16. OLMESARTAN [Concomitant]
     Active Substance: OLMESARTAN
  17. OMEPRAZOLE. [Concomitant]
     Active Substance: OMEPRAZOLE
  18. RISEDRONATE [Concomitant]
     Active Substance: RISEDRONATE SODIUM
  19. SILVER SULFADIAZINE. [Concomitant]
     Active Substance: SILVER SULFADIAZINE
  20. ELIQUIS [Concomitant]
     Active Substance: APIXABAN
  21. FLECAINIDE [Concomitant]
     Active Substance: FLECAINIDE
  22. METHYLPREDNISOLONE SODIUM SUCCINATE. [Concomitant]
     Active Substance: METHYLPREDNISOLONE SODIUM SUCCINATE
     Indication: PREMEDICATION
     Dosage: 100 MG
     Route: 042
  23. IMOVANE [Concomitant]
     Active Substance: ZOPICLONE
  24. PREDNISONE. [Concomitant]
     Active Substance: PREDNISONE

REACTIONS (11)
  - Blood pressure fluctuation [Recovered/Resolved]
  - Headache [Recovered/Resolved]
  - Heart rate increased [Recovered/Resolved]
  - Blood pressure systolic increased [Recovered/Resolved]
  - Intraocular pressure test [Recovered/Resolved]
  - Off label use [Recovered/Resolved]
  - Respiratory rate increased [Recovered/Resolved]
  - Intentional product use issue [Recovered/Resolved]
  - Atrial fibrillation [Recovered/Resolved]
  - Oxygen saturation decreased [Recovered/Resolved]
  - Blood pressure increased [Recovered/Resolved]
